FAERS Safety Report 12083119 (Version 1)
Quarter: 2016Q1

REPORT INFORMATION
  Report Type: Spontaneous
  Country: US (occurrence: None)
  Receive Date: 20160216
  Receipt Date: 20160216
  Transmission Date: 20160526
  Serious: Yes (Other)
  Sender: FDA-Public Use
  Company Number: None

PATIENT
  Age: 36 Year
  Sex: Male
  Weight: 86.18 kg

DRUGS (9)
  1. LEXAPRO [Concomitant]
     Active Substance: ESCITALOPRAM OXALATE
  2. RESERVATROL [Concomitant]
  3. ADDERALL [Suspect]
     Active Substance: AMPHETAMINE ASPARTATE\AMPHETAMINE SULFATE\DEXTROAMPHETAMINE SACCHARATE\DEXTROAMPHETAMINE SULFATE
     Indication: ATTENTION DEFICIT/HYPERACTIVITY DISORDER
     Dates: start: 20160210, end: 20160213
  4. WELLBUTRIN [Concomitant]
     Active Substance: BUPROPION HYDROCHLORIDE
  5. COENZYMEQ10 [Concomitant]
  6. FISH OIL [Concomitant]
     Active Substance: FISH OIL
  7. ALPHA HYDROXY ACID [Concomitant]
     Active Substance: UNSPECIFIED INGREDIENT
  8. ACETYL L CARNITINE [Concomitant]
  9. MULTIVITAMIN [Concomitant]
     Active Substance: VITAMINS

REACTIONS (5)
  - Disorientation [None]
  - Product measured potency issue [None]
  - Product quality issue [None]
  - Somnolence [None]
  - Abdominal pain upper [None]

NARRATIVE: CASE EVENT DATE: 20160210
